FAERS Safety Report 9788980 (Version 2)
Quarter: 2014Q3

REPORT INFORMATION
  Report Type: Spontaneous
  Country: US (occurrence: US)
  Receive Date: 20131230
  Receipt Date: 20140731
  Transmission Date: 20150326
  Serious: Yes (Hospitalization, Disabling, Other)
  Sender: FDA-Public Use
  Company Number: US-009507513-1312USA012305

PATIENT
  Sex: Female
  Weight: 78.46 kg

DRUGS (2)
  1. NUVARING [Suspect]
     Active Substance: ETHINYL ESTRADIOL\ETONOGESTREL
     Dosage: UNK
     Route: 067
  2. NUVARING [Suspect]
     Active Substance: ETHINYL ESTRADIOL\ETONOGESTREL
     Indication: CONTRACEPTION
     Dosage: 0.12-0.015 MG/24 HR
     Route: 067
     Dates: start: 20120917

REACTIONS (10)
  - Vena cava filter insertion [Unknown]
  - Hypertension [Unknown]
  - Chest pain [Unknown]
  - Anxiety [Unknown]
  - Asthma [Unknown]
  - Incorrect drug administration duration [Unknown]
  - Sinus tachycardia [Unknown]
  - Syncope [Unknown]
  - Pulmonary embolism [Not Recovered/Not Resolved]
  - Anticoagulation drug level below therapeutic [Unknown]

NARRATIVE: CASE EVENT DATE: 20120917
